FAERS Safety Report 7944631-0 (Version None)
Quarter: 2011Q4

REPORT INFORMATION
  Report Type: 
  Country: None (occurrence: None)
  Receive Date: 20111129
  Receipt Date: 20111122
  Transmission Date: 20120403
  Serious: Yes (Hospitalization, Other)
  Sender: FDA-Public Use
  Company Number: US-JNJFOC-20111103486

PATIENT
  Age: 59 Year
  Sex: Female

DRUGS (20)
  1. DOXORUBICIN HCL [Suspect]
     Route: 042
  2. DOXORUBICIN HCL [Suspect]
     Dosage: ONCE EVERY 4 WEEKS
     Route: 042
     Dates: start: 20000101
  3. DEXAMETHASONE [Suspect]
     Route: 065
  4. DOXORUBICIN HCL [Suspect]
     Route: 042
  5. CARMUSTINE [Suspect]
     Route: 065
  6. CARMUSTINE [Suspect]
     Route: 065
  7. PAMIDRONATE DISODIUM [Suspect]
     Route: 042
  8. PAMIDRONATE DISODIUM [Suspect]
     Route: 042
  9. CARMUSTINE [Suspect]
     Indication: MULTIPLE MYELOMA
     Route: 065
  10. DEXAMETHASONE [Suspect]
     Route: 065
  11. DEXAMETHASONE [Suspect]
     Route: 065
  12. PAMIDRONATE DISODIUM [Suspect]
     Indication: MULTIPLE MYELOMA
     Route: 042
  13. PAMIDRONATE DISODIUM [Suspect]
     Route: 042
  14. BORTEZOMIB [Suspect]
     Dosage: 1.3 MG/MM3 ON DAYS 1,4,8 AND 11 EVERY 3 WEEKS OF DOXORUBICIN
     Route: 065
  15. DEXAMETHASONE [Suspect]
     Indication: MULTIPLE MYELOMA
     Route: 065
  16. BORTEZOMIB [Suspect]
     Indication: MULTIPLE MYELOMA
     Dosage: ON DAYS 1,4, 8 AND EVERY 21 DAYS
     Route: 065
  17. CARMUSTINE [Suspect]
     Route: 065
  18. DOXORUBICIN HCL [Suspect]
     Indication: MULTIPLE MYELOMA
     Route: 042
  19. DOXORUBICIN HCL [Suspect]
     Route: 042
  20. THALIDOMIDE [Suspect]
     Indication: MULTIPLE MYELOMA
     Route: 065

REACTIONS (3)
  - FEBRILE NEUTROPENIA [None]
  - CARDIAC FAILURE CONGESTIVE [None]
  - BLOOD IMMUNOGLOBULIN A INCREASED [None]
